FAERS Safety Report 18185737 (Version 1)
Quarter: 2020Q3

REPORT INFORMATION
  Report Type: Spontaneous
  Country: ES (occurrence: ES)
  Receive Date: 20200824
  Receipt Date: 20200824
  Transmission Date: 20201103
  Serious: Yes (Hospitalization)
  Sender: FDA-Public Use
  Company Number: ES-TEVA-2020-ES-1817044

PATIENT
  Age: 70 Year
  Sex: Male

DRUGS (3)
  1. PANTOPRAZOL (7275A) [Suspect]
     Active Substance: PANTOPRAZOLE
     Indication: SUICIDE ATTEMPT
     Dosage: 16 COMP
     Route: 048
     Dates: start: 20200802
  2. METAMIZOL (111A) [Suspect]
     Active Substance: METAMIZOL SODIUM
     Indication: SUICIDE ATTEMPT
     Dosage: 21 COMP
     Route: 048
     Dates: start: 20200802
  3. PARACETAMOL (12A) [Suspect]
     Active Substance: ACETAMINOPHEN
     Indication: SUICIDE ATTEMPT
     Dosage: 16 COMP
     Route: 048
     Dates: start: 20200802

REACTIONS (2)
  - Intentional overdose [Recovered/Resolved]
  - Loss of consciousness [Recovered/Resolved]

NARRATIVE: CASE EVENT DATE: 20200802
